FAERS Safety Report 6670904-8 (Version None)
Quarter: 2010Q2

REPORT INFORMATION
  Report Type: 
  Country: None (occurrence: None)
  Receive Date: 20100407
  Receipt Date: 20100323
  Transmission Date: 20101027
  Serious: No
  Sender: FDA-Public Use
  Company Number: US-B.I. PHARMACEUTICALS,INC./RIDGEFIELD-2010-BP-03388BP

PATIENT
  Age: 60 Year
  Sex: Male

DRUGS (7)
  1. CATAPRES-TTS-1 [Suspect]
     Indication: HYPERTENSION
     Route: 061
     Dates: end: 20100217
  2. COZAAR [Concomitant]
     Dosage: 100 MG
  3. HYDROCHLOROTHIAZIDE [Concomitant]
     Dosage: 25 MG
  4. METFORMIN [Concomitant]
     Dosage: 2550 MG
  5. GLYBURIDE [Concomitant]
     Dosage: 10 MG
  6. SIMVASTATIN [Concomitant]
     Dosage: 20 MG
  7. LEVEMIR [Concomitant]
     Dosage: 72 U
     Route: 058

REACTIONS (1)
  - PRURITUS [None]
